FAERS Safety Report 9640940 (Version 2)
Quarter: 2013Q4

REPORT INFORMATION
  Report Type: Spontaneous
  Country: US (occurrence: US)
  Receive Date: 20131023
  Receipt Date: 20131023
  Transmission Date: 20140711
  Serious: No
  Sender: FDA-Public Use
  Company Number: US-ABBVIE-12P-163-0990708-00

PATIENT
  Age: 50 Year
  Sex: Female

DRUGS (1)
  1. LEUPROLIDE ACETATE DEPOT (ABBOTT) [Suspect]
     Indication: UTERINE LEIOMYOMA
     Dates: start: 201208

REACTIONS (3)
  - Headache [Not Recovered/Not Resolved]
  - Arthralgia [Not Recovered/Not Resolved]
  - Hot flush [Not Recovered/Not Resolved]
